FAERS Safety Report 7807434-3 (Version None)
Quarter: 2011Q4

REPORT INFORMATION
  Report Type: 
  Country: None (occurrence: None)
  Receive Date: 20111011
  Receipt Date: 20110928
  Transmission Date: 20120403
  Serious: Yes (Hospitalization, Other)
  Sender: FDA-Public Use
  Company Number: PHHY2011DE81324

PATIENT
  Sex: Female

DRUGS (1)
  1. TOBI [Suspect]
     Dosage: 4 DF, BID

REACTIONS (5)
  - SOMNOLENCE [None]
  - NEUROLOGICAL SYMPTOM [None]
  - PARESIS [None]
  - MUSCLE SPASMS [None]
  - VISUAL IMPAIRMENT [None]
